FAERS Safety Report 21705317 (Version 2)
Quarter: 2022Q4

REPORT INFORMATION
  Report Type: Spontaneous
  Country: US (occurrence: US)
  Receive Date: 20221209
  Receipt Date: 20221213
  Transmission Date: 20230112
  Serious: No
  Sender: FDA-Public Use
  Company Number: US-SANOFI-01396030

PATIENT
  Age: 81 Year
  Sex: Female

DRUGS (10)
  1. DUPIXENT [Suspect]
     Active Substance: DUPILUMAB
     Indication: Eczema
     Dosage: UNK UNK, 1X
     Route: 058
     Dates: start: 20221107, end: 20221107
  2. DUPIXENT [Suspect]
     Active Substance: DUPILUMAB
     Dosage: 300 MG, QOW
     Route: 058
     Dates: start: 202211
  3. LORATADINE [Concomitant]
     Active Substance: LORATADINE
     Dosage: DAILY
  4. LOVASTATIN [Concomitant]
     Active Substance: LOVASTATIN
     Dosage: DAILY
  5. FLUOXETINE [Concomitant]
     Active Substance: FLUOXETINE HYDROCHLORIDE
     Dosage: DAILY
  6. ASPIRIN [Concomitant]
     Active Substance: ASPIRIN
     Dosage: UNK
  7. VITAMIN B12 [Concomitant]
     Active Substance: CYANOCOBALAMIN
  8. VITAMIN D3 [Concomitant]
     Active Substance: CHOLECALCIFEROL
     Dosage: DAILY
  9. VITAMINS [Concomitant]
     Active Substance: VITAMINS
     Dosage: DAILY
  10. C 500 [ASCORBIC ACID] [Concomitant]
     Dosage: TWO A DAY

REACTIONS (3)
  - Pruritus [Not Recovered/Not Resolved]
  - Drug ineffective [Not Recovered/Not Resolved]
  - Accidental exposure to product [Unknown]

NARRATIVE: CASE EVENT DATE: 20221206
